FAERS Safety Report 6557864-5 (Version None)
Quarter: 2010Q1

REPORT INFORMATION
  Report Type: 
  Country: None (occurrence: None)
  Receive Date: 20100129
  Receipt Date: 20100126
  Transmission Date: 20100710
  Serious: Yes (Death)
  Sender: FDA-Public Use
  Company Number: DE-ASTRAZENECA-2010SE03383

PATIENT
  Age: 58 Year
  Sex: Female
  Weight: 120 kg

DRUGS (9)
  1. SEROQUEL XR [Suspect]
     Route: 048
  2. CLOZAPINE [Interacting]
  3. BIPERIDEN HYDROCHLORIDE TAB [Interacting]
  4. SPASMO - MUCOSOLVAN [Interacting]
     Dates: start: 20091221
  5. MIRTAZAPIN 45MG [Concomitant]
  6. L-THYROXIN [Concomitant]
  7. OMEPRAZOL 20 [Concomitant]
  8. LYRICA [Concomitant]
  9. CEFURAX 500MG [Concomitant]
     Dates: start: 20091221

REACTIONS (1)
  - SUDDEN DEATH [None]
